FAERS Safety Report 7399406-0 (Version None)
Quarter: 2011Q1

REPORT INFORMATION
  Report Type: 
  Country: None (occurrence: None)
  Receive Date: 20110329
  Receipt Date: 20110316
  Transmission Date: 20110831
  Serious: Yes (Other)
  Sender: FDA-Public Use
  Company Number: 2011SP012185

PATIENT
  Age: 31 Year
  Sex: Female

DRUGS (1)
  1. NASOMET (MOMETASONE FUROATE) [Suspect]
     Indication: CHRONIC SINUSITIS
     Dosage: 2 DF;QAM;INH
     Route: 055
     Dates: start: 20100101

REACTIONS (3)
  - BURNING SENSATION [None]
  - SWELLING FACE [None]
  - WOUND HAEMORRHAGE [None]
